FAERS Safety Report 17681391 (Version 1)
Quarter: 2020Q2

REPORT INFORMATION
  Report Type: Other
  Country: US (occurrence: US)
  Receive Date: 20200417
  Receipt Date: 20200417
  Transmission Date: 20200714
  Serious: Yes (Life-Threatening)
  Sender: FDA-Public Use
  Company Number: US-US-PROVELL PHARMACEUTICALS LLC-9156620

PATIENT
  Age: 64 Year
  Sex: Female

DRUGS (2)
  1. AMLODIPINE [Suspect]
     Active Substance: AMLODIPINE BESYLATE
     Indication: PRODUCT USED FOR UNKNOWN INDICATION
     Dosage: UNKNOWN NUMBER OF PILLS
  2. LEVOTHYROXINE. [Suspect]
     Active Substance: LEVOTHYROXINE
     Indication: PRODUCT USED FOR UNKNOWN INDICATION
     Dosage: UNKNOWN NUMBER OF PILLS

REACTIONS (7)
  - Liver injury [Unknown]
  - Intentional overdose [Unknown]
  - Rhabdomyolysis [Unknown]
  - Leukocytosis [Unknown]
  - Acute kidney injury [Unknown]
  - Shock [Unknown]
  - Metabolic acidosis [Unknown]
